FAERS Safety Report 5909535-3 (Version None)
Quarter: 2008Q4

REPORT INFORMATION
  Report Type: 
  Country: None (occurrence: None)
  Receive Date: 20081002
  Receipt Date: 20080929
  Transmission Date: 20090506
  Serious: Yes (Hospitalization)
  Sender: FDA-Public Use
  Company Number: 2008SP019813

PATIENT
  Age: 73 Year
  Sex: Female

DRUGS (7)
  1. VIRAFERONPEG [Suspect]
     Indication: HEPATITIS C
     Dosage: ;SC
     Route: 058
     Dates: start: 20051001, end: 20070101
  2. PEGASYS [Suspect]
     Indication: HEPATITIS C
     Dosage: ;SC
     Route: 058
     Dates: start: 20070101, end: 20080801
  3. REBETOL [Concomitant]
  4. LEVOTHYROX [Concomitant]
  5. OGAST [Concomitant]
  6. DUSPATALIN [Concomitant]
  7. IMOVANE [Concomitant]

REACTIONS (4)
  - COUGH [None]
  - INSOMNIA [None]
  - PULMONARY FIBROSIS [None]
  - RALES [None]
